FAERS Safety Report 9039993 (Version 1)
Quarter: 2013Q1

REPORT INFORMATION
  Report Type: Spontaneous
  Country: PL (occurrence: PL)
  Receive Date: 20130130
  Receipt Date: 20130130
  Transmission Date: 20140127
  Serious: Yes (Hospitalization)
  Sender: FDA-Public Use
  Company Number: PL-JNJFOC-20130114778

PATIENT
  Age: 64 Year
  Sex: Male
  Weight: 103 kg

DRUGS (4)
  1. ABIRATERONE ACETATE [Suspect]
     Indication: PROSTATE CANCER
     Route: 048
     Dates: start: 20121220, end: 20130107
  2. VIVACOR [Concomitant]
     Route: 048
  3. DIURESIN [Concomitant]
     Route: 048
  4. AN UNKNOWN MEDICATION [Concomitant]
     Route: 065

REACTIONS (3)
  - Malaise [Recovered/Resolved]
  - Dyspnoea [Recovered/Resolved]
  - Face oedema [Recovered/Resolved]
